FAERS Safety Report 11138027 (Version 1)
Quarter: 2015Q2

REPORT INFORMATION
  Report Type: Spontaneous
  Country: US (occurrence: US)
  Receive Date: 20150526
  Receipt Date: 20150526
  Transmission Date: 20150821
  Serious: No
  Sender: FDA-Public Use
  Company Number: US-MALLINCKRODT-T201404682

PATIENT
  Age: 28 Year
  Sex: Female

DRUGS (2)
  1. H.P. ACTHAR [Suspect]
     Active Substance: CORTICOTROPIN
     Indication: LUPUS NEPHRITIS
     Dosage: 80 UNITS, TWICE WKLY
     Route: 058
     Dates: start: 20140521
  2. LOSARTIN [Concomitant]
     Active Substance: LOSARTAN
     Dosage: 100 MG

REACTIONS (5)
  - Weight increased [Unknown]
  - Joint swelling [Unknown]
  - Acne [Not Recovered/Not Resolved]
  - Injection site bruising [Recovered/Resolved]
  - Increased appetite [Unknown]

NARRATIVE: CASE EVENT DATE: 201405
